FAERS Safety Report 5787401-4 (Version None)
Quarter: 2008Q2

REPORT INFORMATION
  Report Type: 
  Country: None (occurrence: None)
  Receive Date: 20080625
  Receipt Date: 20080619
  Transmission Date: 20081010
  Serious: Yes (Other)
  Sender: FDA-Public Use
  Company Number: GB-ASTRAZENECA-2008GB01041

PATIENT
  Age: 11 Year
  Sex: Male

DRUGS (3)
  1. SYMBICORT [Suspect]
     Indication: ASTHMA
     Dosage: 100/6 UG 2 PUFFS FREQUENCY UNKNOWN
     Route: 055
     Dates: start: 20071129, end: 20080116
  2. MONTELUKAST SODIUM [Concomitant]
     Indication: ASTHMA
     Route: 048
     Dates: start: 20071108
  3. BECLOMETHASONE DIPROPIONATE [Concomitant]
     Indication: ASTHMA
     Route: 055
     Dates: start: 20061219

REACTIONS (4)
  - INSOMNIA [None]
  - MIDDLE INSOMNIA [None]
  - PANIC ATTACK [None]
  - TREMOR [None]
